FAERS Safety Report 6397473-4 (Version None)
Quarter: 2009Q4

REPORT INFORMATION
  Report Type: 
  Country: None (occurrence: None)
  Receive Date: 20091012
  Receipt Date: 20091007
  Transmission Date: 20100525
  Serious: Yes (Hospitalization, Other)
  Sender: FDA-Public Use
  Company Number: US-BRISTOL-MYERS SQUIBB COMPANY-14809305

PATIENT
  Age: 58 Year
  Sex: Male

DRUGS (3)
  1. AMPHOTERICIN B [Suspect]
     Indication: ASPERGILLOSIS
     Route: 065
     Dates: start: 20090401, end: 20090723
  2. MYCOPHENOLATE MOFETIL [Concomitant]
     Indication: HEART TRANSPLANT
     Dosage: 1 D.F= 500/750 UNITS NOT SPECIFIED
     Route: 048
     Dates: start: 20080304
  3. NEORAL [Concomitant]
     Dates: start: 20080304

REACTIONS (5)
  - DEHYDRATION [None]
  - LEFT VENTRICULAR FAILURE [None]
  - NAUSEA [None]
  - RENAL FAILURE ACUTE [None]
  - VOMITING [None]
